FAERS Safety Report 6586939-X (Version None)
Quarter: 2010Q1

REPORT INFORMATION
  Report Type: 
  Country: None (occurrence: None)
  Receive Date: 20100217
  Receipt Date: 20090417
  Transmission Date: 20100710
  Serious: Yes (Other)
  Sender: FDA-Public Use
  Company Number: US-ALLERGAN-0904517US

PATIENT
  Age: 50 Year
  Sex: Female

DRUGS (1)
  1. BOTOX [Suspect]
     Indication: CERVICOGENIC HEADACHE
     Dosage: 100 UNITS, SINGLE
     Route: 030

REACTIONS (7)
  - ARRHYTHMIA [None]
  - BLOOD PRESSURE INCREASED [None]
  - HEADACHE [None]
  - INSOMNIA [None]
  - MUSCLE SPASMS [None]
  - PYREXIA [None]
  - VERTIGO [None]
